FAERS Safety Report 4740739-1 (Version None)
Quarter: 2005Q3

REPORT INFORMATION
  Report Type: 
  Country: None (occurrence: None)
  Receive Date: 20050810
  Receipt Date: 20050729
  Transmission Date: 20060218
  Serious: Yes (Hospitalization)
  Sender: FDA-Public Use
  Company Number: US-JNJFOC-20050800464

PATIENT
  Age: 57 Year
  Sex: Female

DRUGS (7)
  1. TOPAMAX [Suspect]
     Route: 048
  2. TEGRETOL [Suspect]
     Route: 048
  3. SYNTHROID [Concomitant]
     Indication: HORMONE REPLACEMENT THERAPY
     Route: 048
  4. CELEXA [Concomitant]
     Indication: DEPRESSION
     Route: 065
  5. ESTRIOL [Concomitant]
     Indication: HORMONE REPLACEMENT THERAPY
     Route: 048
  6. AMITRIPTYLINE [Concomitant]
     Indication: SLEEP DISORDER THERAPY
     Route: 065
  7. DESYREL [Concomitant]
     Indication: INSOMNIA
     Route: 065

REACTIONS (3)
  - ANTICONVULSANT DRUG LEVEL INCREASED [None]
  - GALLBLADDER DISORDER [None]
  - ROAD TRAFFIC ACCIDENT [None]
